FAERS Safety Report 14926459 (Version 1)
Quarter: 2018Q2

REPORT INFORMATION
  Report Type: Spontaneous
  Country: US (occurrence: US)
  Receive Date: 20180523
  Receipt Date: 20180523
  Transmission Date: 20180711
  Serious: Yes (Death, Life-Threatening, Hospitalization, Other)
  Sender: FDA-Public Use
  Company Number: US-009507513-1805USA006652

PATIENT
  Sex: Male

DRUGS (7)
  1. MS CONTIN [Suspect]
     Active Substance: MORPHINE SULFATE
     Indication: PAIN
     Dosage: 15 MG, QPM
     Dates: end: 20171121
  2. DEXAMETHASONE. [Suspect]
     Active Substance: DEXAMETHASONE
     Dosage: UNK
     Route: 048
     Dates: start: 2017
  3. OXYCODONE [Suspect]
     Active Substance: OXYCODONE
     Indication: PAIN
     Dosage: 2 DF, Q4H
     Route: 048
     Dates: start: 20171121
  4. KEYTRUDA [Suspect]
     Active Substance: PEMBROLIZUMAB
     Indication: BLADDER CANCER STAGE IV
     Dosage: 200 MG, UNK
     Dates: start: 20170921
  5. KEYTRUDA [Suspect]
     Active Substance: PEMBROLIZUMAB
     Indication: METASTATIC CARCINOMA OF THE BLADDER
     Dosage: SECOND INFUSION
     Dates: start: 20180213
  6. PERCOCET [Suspect]
     Active Substance: ACETAMINOPHEN\OXYCODONE HYDROCHLORIDE
     Indication: PAIN
     Dosage: FOR SEVERAL WEEKS
     Dates: start: 2017, end: 20171121
  7. MS CONTIN [Suspect]
     Active Substance: MORPHINE SULFATE
     Dosage: 30 MG, QPM
     Dates: start: 20171121

REACTIONS (38)
  - Malignant neoplasm progression [Unknown]
  - Nephrolithiasis [Unknown]
  - Hyperthyroidism [Not Recovered/Not Resolved]
  - Delirium [Unknown]
  - Sinus disorder [Unknown]
  - Muscular weakness [Not Recovered/Not Resolved]
  - Oedema peripheral [Recovering/Resolving]
  - Cardiac failure congestive [Unknown]
  - Chromaturia [Unknown]
  - Autoimmune lung disease [Unknown]
  - Pulmonary embolism [Fatal]
  - Hypothyroidism [Not Recovered/Not Resolved]
  - Negative thoughts [Unknown]
  - Loss of consciousness [Not Recovered/Not Resolved]
  - Radiation associated pain [Unknown]
  - Immune-mediated adverse reaction [Not Recovered/Not Resolved]
  - Pneumonia pneumococcal [Fatal]
  - Pneumonitis [Fatal]
  - Spinal osteoarthritis [Unknown]
  - Autoimmune thyroiditis [Unknown]
  - Hemiparesis [Recovered/Resolved]
  - Endocrine toxicity [Fatal]
  - Pulmonary toxicity [Fatal]
  - Hyperaesthesia [Unknown]
  - Cancer pain [Unknown]
  - Quality of life decreased [Not Recovered/Not Resolved]
  - Granuloma [Unknown]
  - Arteriosclerosis coronary artery [Unknown]
  - Multi-organ disorder [Not Recovered/Not Resolved]
  - Cholecystectomy [Unknown]
  - Inappropriate schedule of drug administration [Unknown]
  - Septic shock [Fatal]
  - Electrolyte imbalance [Fatal]
  - Cardiomegaly [Unknown]
  - Diverticulum intestinal [Unknown]
  - Neuralgia [Unknown]
  - Blood glucose increased [Unknown]
  - Toxicity to various agents [Fatal]

NARRATIVE: CASE EVENT DATE: 2017
